FAERS Safety Report 7522316-2 (Version None)
Quarter: 2011Q2

REPORT INFORMATION
  Report Type: 
  Country: None (occurrence: None)
  Receive Date: 20110603
  Receipt Date: 20110519
  Transmission Date: 20111010
  Serious: Yes (Hospitalization, Other)
  Sender: FDA-Public Use
  Company Number: PHHY2011TW36012

PATIENT
  Sex: Male

DRUGS (2)
  1. GLEEVEC [Suspect]
     Dosage: 300 MG
     Route: 048
     Dates: start: 20110423
  2. GLEEVEC [Suspect]
     Indication: GASTROINTESTINAL STROMAL TUMOUR
     Dosage: 400 MG, DAILY
     Route: 048
     Dates: start: 20110310, end: 20110409

REACTIONS (18)
  - RENAL FUNCTION TEST ABNORMAL [None]
  - HYPOTENSION [None]
  - SYNCOPE [None]
  - COLD SWEAT [None]
  - GASTROOESOPHAGEAL REFLUX DISEASE [None]
  - LIVER FUNCTION TEST ABNORMAL [None]
  - MUSCULAR WEAKNESS [None]
  - HAEMOGLOBIN DECREASED [None]
  - SERUM FERRITIN INCREASED [None]
  - MICTURITION URGENCY [None]
  - FATIGUE [None]
  - DIZZINESS [None]
  - CHEST DISCOMFORT [None]
  - EPIDIDYMITIS [None]
  - DRY SKIN [None]
  - GASTROINTESTINAL DISORDER [None]
  - PALLOR [None]
  - CARDIAC DISORDER [None]
